FAERS Safety Report 24550802 (Version 3)
Quarter: 2025Q2

REPORT INFORMATION
  Report Type: Report from Study
  Country: FR (occurrence: FR)
  Receive Date: 20241025
  Receipt Date: 20250521
  Transmission Date: 20250716
  Serious: Yes (Hospitalization, Disabling)
  Sender: SANDOZ
  Company Number: FR-002147023-NVSC2023FR020418

PATIENT
  Age: 51 Year
  Sex: Male
  Weight: 69 kg

DRUGS (22)
  1. MERCAPTOPURINE [Suspect]
     Active Substance: MERCAPTOPURINE
     Indication: Product used for unknown indication
     Route: 048
     Dates: start: 20220503
  2. METHOTREXATE [Suspect]
     Active Substance: METHOTREXATE
     Indication: Acute lymphocytic leukaemia
     Route: 037
     Dates: start: 20221004
  3. METHOTREXATE [Suspect]
     Active Substance: METHOTREXATE
     Route: 065
     Dates: start: 20220503, end: 20220823
  4. METHOTREXATE [Suspect]
     Active Substance: METHOTREXATE
     Route: 048
     Dates: start: 20230612
  5. NELARABINE [Suspect]
     Active Substance: NELARABINE
     Indication: Acute lymphocytic leukaemia
     Route: 042
     Dates: start: 20211216, end: 20220921
  6. NELARABINE [Suspect]
     Active Substance: NELARABINE
     Route: 065
     Dates: start: 20240207
  7. CYTARABINE [Concomitant]
     Active Substance: CYTARABINE
     Indication: Product used for unknown indication
     Route: 037
     Dates: start: 20220503, end: 20220823
  8. BACTRIM [Concomitant]
     Active Substance: SULFAMETHOXAZOLE\TRIMETHOPRIM
     Indication: Prophylaxis
     Route: 048
     Dates: start: 20211001
  9. BACTRIM [Concomitant]
     Active Substance: SULFAMETHOXAZOLE\TRIMETHOPRIM
     Route: 048
     Dates: start: 20211001
  10. LANSOPRAZOLE [Concomitant]
     Active Substance: LANSOPRAZOLE
     Indication: Product used for unknown indication
     Route: 048
     Dates: start: 20211001
  11. METHOTREXATE [Concomitant]
     Active Substance: METHOTREXATE
     Indication: Product used for unknown indication
     Route: 048
     Dates: start: 20230612
  12. METHOTREXATE [Concomitant]
     Active Substance: METHOTREXATE
     Route: 037
  13. NELARABINE [Concomitant]
     Active Substance: NELARABINE
     Indication: Product used for unknown indication
     Route: 042
     Dates: start: 20220529, end: 20220921
  14. PREDNISONE [Concomitant]
     Active Substance: PREDNISONE
     Indication: Product used for unknown indication
     Route: 048
  15. PREDNISONE [Concomitant]
     Active Substance: PREDNISONE
     Route: 065
     Dates: start: 20220503
  16. PURINETHOL [Concomitant]
     Active Substance: MERCAPTOPURINE
     Route: 048
     Dates: start: 20220503
  17. PURINETHOL [Concomitant]
     Active Substance: MERCAPTOPURINE
     Route: 048
     Dates: start: 20220503
  18. PURINETHOL [Concomitant]
     Active Substance: MERCAPTOPURINE
     Indication: Product used for unknown indication
     Route: 048
     Dates: start: 20220103
  19. VINCRISTINE [Concomitant]
     Active Substance: VINCRISTINE
     Indication: Product used for unknown indication
     Route: 042
     Dates: start: 20220503, end: 20220623
  20. VINDESINE [Concomitant]
     Active Substance: VINDESINE
     Indication: Product used for unknown indication
     Route: 042
     Dates: start: 20220103
  21. VINDESINE [Concomitant]
     Active Substance: VINDESINE
     Route: 042
     Dates: start: 20221018
  22. VALACYCLOVIR HYDROCHLORIDE [Concomitant]
     Active Substance: VALACYCLOVIR HYDROCHLORIDE
     Indication: Prophylaxis
     Route: 048
     Dates: start: 20211001

REACTIONS (5)
  - Pancytopenia [Recovered/Resolved with Sequelae]
  - Lung disorder [Recovered/Resolved with Sequelae]
  - Cytomegalovirus infection reactivation [Recovered/Resolved with Sequelae]
  - Spinal cord injury [Recovered/Resolved with Sequelae]
  - Paraesthesia [Not Recovered/Not Resolved]

NARRATIVE: CASE EVENT DATE: 20221105
